FAERS Safety Report 20144472 (Version 1)
Quarter: 2021Q4

REPORT INFORMATION
  Report Type: Report from Study
  Country: JP (occurrence: JP)
  Receive Date: 20211203
  Receipt Date: 20211203
  Transmission Date: 20220304
  Serious: Yes (Death, Life-Threatening, Other)
  Sender: FDA-Public Use
  Company Number: JP-Clinigen Healthcare-Clinigen-003485

PATIENT
  Age: 67 Year
  Sex: Male
  Weight: 43 kg

DRUGS (12)
  1. DEXRAZOXANE [Suspect]
     Active Substance: DEXRAZOXANE
     Indication: Infusion site extravasation
     Route: 041
     Dates: start: 20141008, end: 20141009
  2. DEXRAZOXANE [Suspect]
     Active Substance: DEXRAZOXANE
     Route: 041
     Dates: start: 20141010, end: 20141010
  3. DAUNORUBICIN [Suspect]
     Active Substance: DAUNORUBICIN
     Indication: Acute myeloid leukaemia
     Route: 041
  4. CYTARABINE [Suspect]
     Active Substance: CYTARABINE
     Indication: Acute myeloid leukaemia
     Route: 041
     Dates: end: 20141012
  5. XYLOCAINE [Concomitant]
     Active Substance: LIDOCAINE HYDROCHLORIDE
     Indication: Infusion site extravasation
     Route: 003
     Dates: start: 20141008, end: 20141008
  6. DEXAMETHASONE SODIUM PHOSPHATE [Concomitant]
     Active Substance: DEXAMETHASONE SODIUM PHOSPHATE
     Indication: Infusion site extravasation
     Route: 003
     Dates: start: 20141008, end: 20141008
  7. ITRACONAZOLE [Concomitant]
     Active Substance: ITRACONAZOLE
     Indication: Antifungal prophylaxis
     Route: 048
     Dates: start: 20141011
  8. CEFOZOPRAN HYDROCHLORIDE [Concomitant]
     Active Substance: CEFOZOPRAN HYDROCHLORIDE
     Indication: Febrile neutropenia
     Route: 042
     Dates: start: 20141012, end: 20141024
  9. FAMOTIDINE [Concomitant]
     Active Substance: FAMOTIDINE
     Indication: Gastritis prophylaxis
     Route: 048
  10. TEPRENONE [Concomitant]
     Active Substance: TEPRENONE
     Indication: Gastritis prophylaxis
     Route: 048
  11. FEBUXOSTAT [Concomitant]
     Active Substance: FEBUXOSTAT
     Indication: Hyperuricaemia
     Route: 048
  12. SODIUM CHLORIDE [Concomitant]
     Active Substance: SODIUM CHLORIDE
     Indication: Medication dilution
     Dates: start: 20141008

REACTIONS (3)
  - Acute myeloid leukaemia [Fatal]
  - Myelosuppression [Not Recovered/Not Resolved]
  - Febrile neutropenia [Recovering/Resolving]

NARRATIVE: CASE EVENT DATE: 20141014
